FAERS Safety Report 13370150 (Version 1)
Quarter: 2017Q1

REPORT INFORMATION
  Report Type: Spontaneous
  Country: FR (occurrence: FR)
  Receive Date: 20170324
  Receipt Date: 20170324
  Transmission Date: 20170429
  Serious: Yes (Hospitalization)
  Sender: FDA-Public Use
  Company Number: FR-MUNDIPHARMA DS AND PHARMACOVIGILANCE-GBR-2017-0044240

PATIENT
  Age: 80 Year
  Sex: Female

DRUGS (6)
  1. NABUCOX [Concomitant]
     Active Substance: NABUMETONE
  2. PAROXETINE. [Concomitant]
     Active Substance: PAROXETINE
     Dosage: UNK [STRENGTH 20 MG]
  3. OXYCONTIN [Suspect]
     Active Substance: OXYCODONE HYDROCHLORIDE
     Indication: PRODUCT USED FOR UNKNOWN INDICATION
     Dosage: UNK [20 MG STRENGTH]
     Route: 048
     Dates: start: 20170211, end: 20170211
  4. OXYNORMORO [Suspect]
     Active Substance: OXYCODONE
     Indication: PRODUCT USED FOR UNKNOWN INDICATION
     Dosage: UNK [10 MG STRENGTH]
     Route: 048
     Dates: start: 20170211, end: 20170211
  5. PERINDOPRIL [Concomitant]
     Active Substance: PERINDOPRIL
  6. OMEPRAZOLE. [Concomitant]
     Active Substance: OMEPRAZOLE
     Dosage: UNK [STRENGTH 20 MG]

REACTIONS (9)
  - Respiratory acidosis [Recovered/Resolved]
  - Hypotonia [Recovered/Resolved]
  - Poisoning deliberate [Recovered/Resolved]
  - Hypercapnia [Recovered/Resolved]
  - Oxygen saturation decreased [Recovered/Resolved]
  - Hypoxia [Recovered/Resolved]
  - Acute kidney injury [Recovered/Resolved]
  - Miosis [Recovered/Resolved]
  - Disorientation [Recovered/Resolved]

NARRATIVE: CASE EVENT DATE: 20170211
